FAERS Safety Report 25506588 (Version 1)
Quarter: 2025Q3

REPORT INFORMATION
  Report Type: Spontaneous
  Country: US (occurrence: US)
  Receive Date: 20250702
  Receipt Date: 20250702
  Transmission Date: 20251021
  Serious: No
  Sender: SANOFI AVENTIS
  Company Number: US-SA-2025SA186367

PATIENT
  Sex: Female

DRUGS (10)
  1. DUPIXENT [Suspect]
     Active Substance: DUPILUMAB
     Indication: Type IIa hyperlipidaemia
     Dosage: 300 MG, QOW
     Route: 058
     Dates: start: 20250604
  2. AZELASTINE HYDROCHLORIDE [Concomitant]
     Active Substance: AZELASTINE HYDROCHLORIDE
  3. AMLODIPINE [Concomitant]
     Active Substance: AMLODIPINE BESYLATE
  4. ATORVASTATIN [Concomitant]
     Active Substance: ATORVASTATIN
  5. ESTRADIOL [Concomitant]
     Active Substance: ESTRADIOL
  6. FLUOXETINE [Concomitant]
     Active Substance: FLUOXETINE HYDROCHLORIDE
  7. FLUTICASONE [Concomitant]
     Active Substance: FLUTICASONE
  8. GABAPENTIN [Concomitant]
     Active Substance: GABAPENTIN
  9. MOUNJARO [Concomitant]
     Active Substance: TIRZEPATIDE
  10. MUPIROCIN [Concomitant]
     Active Substance: MUPIROCIN

REACTIONS (3)
  - Sinus congestion [Not Recovered/Not Resolved]
  - Secretion discharge [Not Recovered/Not Resolved]
  - Product use in unapproved indication [Unknown]
